FAERS Safety Report 19048201 (Version 1)
Quarter: 2021Q1

REPORT INFORMATION
  Report Type: Spontaneous
  Country: DE (occurrence: DE)
  Receive Date: 20210323
  Receipt Date: 20210323
  Transmission Date: 20210420
  Serious: Yes (Life-Threatening, Hospitalization, Other)
  Sender: FDA-Public Use
  Company Number: DE-TEVA-2021-DE-1891653

PATIENT
  Age: 7 Year
  Sex: Female
  Weight: 17 kg

DRUGS (5)
  1. VIGABATRIN. [Suspect]
     Active Substance: VIGABATRIN
     Indication: AUTISM SPECTRUM DISORDER
     Dosage: 750MG
  2. MELATONIN [Concomitant]
     Active Substance: MELATONIN
     Indication: AUTISM SPECTRUM DISORDER
     Dosage: 2MG
  3. LEVETIRACETAM. [Suspect]
     Active Substance: LEVETIRACETAM
     Indication: EPILEPSY
     Dosage: 600MG
  4. LAMOTRIGIN [Suspect]
     Active Substance: LAMOTRIGINE
     Indication: EPILEPSY
     Dosage: 75MG
  5. OMEPRAZOL [Concomitant]
     Active Substance: OMEPRAZOLE
     Dosage: 20MG

REACTIONS (4)
  - Anticonvulsant drug level decreased [Unknown]
  - Status epilepticus [Unknown]
  - Pneumonia [Unknown]
  - Seizure [Unknown]

NARRATIVE: CASE EVENT DATE: 20181028
